FAERS Safety Report 11841000 (Version 1)
Quarter: 2015Q4

REPORT INFORMATION
  Report Type: Spontaneous
  Country: AU (occurrence: AU)
  Receive Date: 20151216
  Receipt Date: 20151216
  Transmission Date: 20160305
  Serious: Yes (Other)
  Sender: FDA-Public Use
  Company Number: PHHY2015AU161543

PATIENT
  Sex: Female
  Weight: 129 kg

DRUGS (31)
  1. DOCETAXEL. [Suspect]
     Active Substance: DOCETAXEL
     Dosage: 184 MG, UNK
     Route: 042
     Dates: start: 20120717
  2. SODIUM CHLORIDE. [Concomitant]
     Active Substance: SODIUM CHLORIDE
     Dosage: 100 ML, UNK
     Route: 042
     Dates: start: 20120807
  3. ONDANSETRON [Concomitant]
     Active Substance: ONDANSETRON
     Dosage: 8 MG, BID X 2 DAYS
     Route: 048
     Dates: start: 20120626
  4. ONDANSETRON [Concomitant]
     Active Substance: ONDANSETRON
     Dosage: 8 MG, BID X 2 DAYS
     Route: 048
     Dates: start: 20120807
  5. PEGFILGRASTIM [Concomitant]
     Active Substance: PEGFILGRASTIM
     Dosage: 6 MG, QD
     Route: 065
     Dates: start: 20120807
  6. SODIUM CHLORIDE. [Concomitant]
     Active Substance: SODIUM CHLORIDE
     Indication: PRODUCT USED FOR UNKNOWN INDICATION
     Dosage: 100 ML, UNK
     Route: 042
     Dates: start: 20120605
  7. GRANISETRON [Concomitant]
     Active Substance: GRANISETRON
     Dosage: 3 MG, UNK
     Route: 042
     Dates: start: 20120626
  8. GRANISETRON [Concomitant]
     Active Substance: GRANISETRON
     Dosage: 3 MG, UNK
     Route: 042
     Dates: start: 20120807
  9. DEXAMETHASONE. [Concomitant]
     Active Substance: DEXAMETHASONE
     Dosage: 8 MG, UNK
     Route: 048
     Dates: start: 20120626
  10. DOCETAXEL. [Suspect]
     Active Substance: DOCETAXEL
     Indication: BREAST CANCER
     Dosage: 184 MG, UNK
     Route: 042
     Dates: start: 20120605
  11. SODIUM CHLORIDE. [Concomitant]
     Active Substance: SODIUM CHLORIDE
     Dosage: 100 ML, UNK
     Route: 042
     Dates: start: 20120626
  12. DEXAMETHASONE. [Concomitant]
     Active Substance: DEXAMETHASONE
     Indication: PRODUCT USED FOR UNKNOWN INDICATION
     Dosage: 8 MG, UNK
     Route: 042
     Dates: start: 20120605
  13. GRANISETRON [Concomitant]
     Active Substance: GRANISETRON
     Indication: PRODUCT USED FOR UNKNOWN INDICATION
     Dosage: 3 MG, UNK
     Route: 042
     Dates: start: 20120605
  14. DEXAMETHASONE. [Concomitant]
     Active Substance: DEXAMETHASONE
     Dosage: 8 MG, UNK
     Route: 042
     Dates: start: 20120717
  15. CYCLOPHOSPHAMIDE. [Suspect]
     Active Substance: CYCLOPHOSPHAMIDE
     Dosage: 1480 MG, UNK
     Route: 042
     Dates: start: 20120626
  16. CYCLOPHOSPHAMIDE. [Suspect]
     Active Substance: CYCLOPHOSPHAMIDE
     Dosage: 1480 MG, UNK
     Route: 042
     Dates: start: 20120807
  17. DOCETAXEL. [Suspect]
     Active Substance: DOCETAXEL
     Dosage: 184 MG, UNK
     Route: 042
     Dates: start: 20120807
  18. SODIUM CHLORIDE. [Concomitant]
     Active Substance: SODIUM CHLORIDE
     Dosage: 100 ML, UNK
     Route: 042
     Dates: start: 20120717
  19. THYROXIN [Concomitant]
     Active Substance: LEVOTHYROXINE
     Indication: HYPOTHYROIDISM
     Dosage: 100 UG, UNK
     Route: 065
  20. DEXAMETHASONE. [Concomitant]
     Active Substance: DEXAMETHASONE
     Dosage: 8 MG, UNK
     Route: 042
     Dates: start: 20120807
  21. CYCLOPHOSPHAMIDE. [Suspect]
     Active Substance: CYCLOPHOSPHAMIDE
     Indication: BREAST CANCER
     Dosage: 1480 MG, UNK
     Route: 042
     Dates: start: 20120605
  22. CYCLOPHOSPHAMIDE. [Suspect]
     Active Substance: CYCLOPHOSPHAMIDE
     Dosage: 1480 MG, UNK
     Route: 042
     Dates: start: 20120717
  23. GRANISETRON [Concomitant]
     Active Substance: GRANISETRON
     Dosage: 3 MG, UNK
     Route: 042
     Dates: start: 20120717
  24. DEXAMETHASONE. [Concomitant]
     Active Substance: DEXAMETHASONE
     Dosage: 8 MG, UNK
     Route: 048
     Dates: start: 20120717
  25. ONDANSETRON [Concomitant]
     Active Substance: ONDANSETRON
     Indication: PRODUCT USED FOR UNKNOWN INDICATION
     Dosage: 8 MG, BID X 2 DAYS
     Route: 048
     Dates: start: 20120605
  26. PEGFILGRASTIM [Concomitant]
     Active Substance: PEGFILGRASTIM
     Indication: PRODUCT USED FOR UNKNOWN INDICATION
     Dosage: 6 MG, QD
     Route: 065
     Dates: start: 20150626
  27. DOCETAXEL. [Suspect]
     Active Substance: DOCETAXEL
     Dosage: 184 MG, UNK
     Route: 042
     Dates: start: 20120626
  28. DEXAMETHASONE. [Concomitant]
     Active Substance: DEXAMETHASONE
     Dosage: 8 MG, UNK
     Route: 042
     Dates: start: 20120626
  29. DEXAMETHASONE. [Concomitant]
     Active Substance: DEXAMETHASONE
     Dosage: 8 MG, UNK
     Route: 048
     Dates: start: 20120605
  30. ONDANSETRON [Concomitant]
     Active Substance: ONDANSETRON
     Dosage: 8 MG, BID X 2 DAYS
     Route: 048
     Dates: start: 20120717
  31. PEGFILGRASTIM [Concomitant]
     Active Substance: PEGFILGRASTIM
     Dosage: 6 MG, QD
     Route: 065
     Dates: start: 20120717

REACTIONS (8)
  - Rash [Unknown]
  - Fluid retention [Unknown]
  - Fistula [Unknown]
  - Vitamin B12 deficiency [Recovered/Resolved]
  - Nausea [Unknown]
  - Neuropathy peripheral [Recovering/Resolving]
  - Diarrhoea [Unknown]
  - Vomiting [Unknown]
